FAERS Safety Report 8298934-3 (Version None)
Quarter: 2012Q2

REPORT INFORMATION
  Report Type: 
  Country: None (occurrence: None)
  Receive Date: 20120419
  Receipt Date: 20120412
  Transmission Date: 20120825
  Serious: No
  Sender: FDA-Public Use
  Company Number: US-PFIZER INC-2012093963

PATIENT
  Sex: Female

DRUGS (2)
  1. XALKORI [Suspect]
     Indication: BRONCHIAL CARCINOMA
     Dosage: 1 CAPSULE TWICE A DAY
     Route: 048
     Dates: start: 20120402
  2. XALKORI [Suspect]
     Indication: LUNG NEOPLASM MALIGNANT

REACTIONS (2)
  - GASTROOESOPHAGEAL REFLUX DISEASE [None]
  - GASTROINTESTINAL DISORDER [None]
